FAERS Safety Report 4538167-7 (Version None)
Quarter: 2004Q4

REPORT INFORMATION
  Report Type: 
  Country: None (occurrence: None)
  Receive Date: 20041221
  Receipt Date: 20041213
  Transmission Date: 20050328
  Serious: Yes (Disabling)
  Sender: FDA-Public Use
  Company Number: 805#1#2004-00035

PATIENT
  Age: 87 Year
  Sex: Female

DRUGS (6)
  1. PROSTANDIN          (ALPROSTADIL (PAOD) [Suspect]
     Indication: ATHEROSCLEROSIS OBLITERANS
     Dosage: 1.40 MCG, INTRAVENOUS DRIP
     Route: 041
     Dates: start: 20041102, end: 20041122
  2. CILOSTAZOL [Concomitant]
  3. LIMAPROST-ALFADEX (LIMAPROST) [Concomitant]
  4. LOSARTAN POTASSIUM [Concomitant]
  5. SENNOSIDE [Concomitant]
  6. PANCREATIC-DIGESTIVE-ENZYME             (ENZYMES NOS) [Concomitant]

REACTIONS (4)
  - BLOOD CHOLESTEROL DECREASED [None]
  - GENERALISED OEDEMA [None]
  - HAEMOGLOBIN DECREASED [None]
  - PROTEIN TOTAL DECREASED [None]
